FAERS Safety Report 7961194-4 (Version None)
Quarter: 2011Q4

REPORT INFORMATION
  Report Type: 
  Country: None (occurrence: None)
  Receive Date: 20111202
  Receipt Date: 20111122
  Transmission Date: 20120403
  Serious: Yes (Death)
  Sender: FDA-Public Use
  Company Number: CIP-2011-00999

PATIENT

DRUGS (4)
  1. IRINOTECAN HCL [Suspect]
     Indication: RECURRENT CANCER
     Dosage: 125 MG/M(2) WEEKLY FOR 4 WEEKS FOLLOWED BY 2 WEEKS OFF (6 WEEK CYCLES)
  2. IRINOTECAN HCL [Suspect]
     Indication: MALIGNANT GLIOMA
     Dosage: 125 MG/M(2) WEEKLY FOR 4 WEEKS FOLLOWED BY 2 WEEKS OFF (6 WEEK CYCLES)
  3. THALIDOMIDE [Suspect]
     Indication: MALIGNANT GLIOMA
     Dosage: 100 MG DAILY INCREASED TO 400 MG/DAY AS TOLERATED
  4. THALIDOMIDE [Suspect]
     Indication: RECURRENT CANCER
     Dosage: 100 MG DAILY INCREASED TO 400 MG/DAY AS TOLERATED

REACTIONS (1)
  - UROSEPSIS [None]
